FAERS Safety Report 17614707 (Version 1)
Quarter: 2020Q2

REPORT INFORMATION
  Report Type: Spontaneous
  Country: CN (occurrence: CN)
  Receive Date: 20200402
  Receipt Date: 20200402
  Transmission Date: 20200713
  Serious: Yes (Hospitalization)
  Sender: FDA-Public Use
  Company Number: CN-ELI_LILLY_AND_COMPANY-CN202003010824

PATIENT
  Sex: Female
  Weight: 60 kg

DRUGS (3)
  1. BASALIN [Suspect]
     Active Substance: INSULIN GLARGINE
     Indication: TYPE 1 DIABETES MELLITUS
     Dosage: 16 U, DAILY
     Route: 058
     Dates: start: 20200201, end: 20200202
  2. BASALIN [Suspect]
     Active Substance: INSULIN GLARGINE
     Dosage: 12 U, DAILY
     Route: 058
     Dates: start: 20200303
  3. INSULIN LISPRO [Suspect]
     Active Substance: INSULIN LISPRO
     Indication: TYPE 1 DIABETES MELLITUS
     Dosage: 2 U, TID
     Route: 058
     Dates: start: 20200201, end: 20200304

REACTIONS (5)
  - Diabetic nephropathy [Recovering/Resolving]
  - Hypoglycaemia [Recovering/Resolving]
  - Type 1 diabetes mellitus [Recovering/Resolving]
  - Anaemia [Recovering/Resolving]
  - Urinary tract infection [Recovering/Resolving]
